FAERS Safety Report 5494850-0 (Version None)
Quarter: 2007Q4

REPORT INFORMATION
  Report Type: 
  Country: None (occurrence: None)
  Receive Date: 20071022
  Receipt Date: 20071008
  Transmission Date: 20080405
  Serious: Yes (Other)
  Sender: FDA-Public Use
  Company Number: 071009-0001113

PATIENT
  Age: 30 Year
  Sex: Female

DRUGS (4)
  1. COSMEGEN [Suspect]
     Indication: BENIGN HYDATIDIFORM MOLE
     Dosage: ;QD;IV
     Route: 042
  2. METHOTREXATE [Suspect]
     Indication: BENIGN HYDATIDIFORM MOLE
     Dosage: ;QD
  3. ETOPOSIDE [Suspect]
     Indication: BENIGN HYDATIDIFORM MOLE
     Dosage: ;QD;
  4. NEUPOGEN [Concomitant]
     Indication: NEUTROPENIA

REACTIONS (6)
  - BONE MARROW FAILURE [None]
  - DIARRHOEA [None]
  - DRUG ERUPTION [None]
  - DRUG INEFFECTIVE [None]
  - SKIN EXFOLIATION [None]
  - STOMATITIS [None]
